FAERS Safety Report 8495002 (Version 2)
Quarter: 2013Q2

REPORT INFORMATION
  Report Type: Spontaneous
  Country: US (occurrence: US)
  Receive Date: 20120405
  Receipt Date: 20130405
  Transmission Date: 20140414
  Serious: No
  Sender: FDA-Public Use
  Company Number: US-PFIZER INC-2012084147

PATIENT
  Age: 76 Year
  Sex: Female
  Weight: 70.75 kg

DRUGS (7)
  1. XANAX XR [Suspect]
     Indication: ANXIETY
     Dosage: 2 MG, 1X/DAY
     Dates: start: 2008, end: 20120331
  2. ZOLOFT [Suspect]
     Indication: ANXIETY
     Dosage: UNK
  3. LEXAPRO [Suspect]
     Indication: ANXIETY
     Dosage: UNK
  4. PROZAC [Suspect]
     Indication: ANXIETY
     Dosage: UNK
  5. TENORMIN [Concomitant]
     Indication: HYPERTENSION
     Dosage: 25 MG, DAILY
  6. CAPTOPRIL [Concomitant]
     Indication: HYPERTENSION
     Dosage: 25 MG, 2X/DAY
  7. GLYBURIDE [Concomitant]
     Indication: DIABETES MELLITUS
     Dosage: 1.25 MG, DAILY

REACTIONS (8)
  - Drug ineffective [Unknown]
  - Anxiety [Not Recovered/Not Resolved]
  - Nervousness [Not Recovered/Not Resolved]
  - Nausea [Not Recovered/Not Resolved]
  - Insomnia [Not Recovered/Not Resolved]
  - Decreased appetite [Not Recovered/Not Resolved]
  - Panic attack [Unknown]
  - Anxiety [Unknown]
